FAERS Safety Report 14951752 (Version 1)
Quarter: 2018Q2

REPORT INFORMATION
  Report Type: Spontaneous
  Country: ZA (occurrence: ZA)
  Receive Date: 20180530
  Receipt Date: 20180530
  Transmission Date: 20180711
  Serious: Yes (Hospitalization, Other)
  Sender: FDA-Public Use
  Company Number: ZA-009507513-1805ZAF013951

PATIENT
  Age: 36 Year
  Sex: Female

DRUGS (14)
  1. TRANQIPAM [Suspect]
     Active Substance: LORAZEPAM
  2. TOPALEX [Suspect]
     Active Substance: TOPIRAMATE
     Dosage: 100 MG, UNK
  3. EPITEC [Suspect]
     Active Substance: LAMOTRIGINE
     Dosage: 50 MG, UNK
  4. EPITEC [Suspect]
     Active Substance: LAMOTRIGINE
     Dosage: 100 MG, UNK
  5. YELATE [Suspect]
     Active Substance: DULOXETINE HYDROCHLORIDE
  6. METHOTREXATE SODIUM. [Suspect]
     Active Substance: METHOTREXATE SODIUM
     Dosage: 2.5 MG, UNK
  7. NIVAQUINE [Suspect]
     Active Substance: CHLOROQUINE
     Dosage: 200 MG, UNK
  8. SPIRACTIN (SPIRONOLACTONE) [Suspect]
     Active Substance: SPIRONOLACTONE
     Dosage: 25 MG, UNK
  9. BILOCOR [Suspect]
     Active Substance: BISOPROLOL FUMARATE
     Dosage: 5 MG, UNK
  10. ADCO ZOPIMED [Suspect]
     Active Substance: ZOPICLONE
  11. MAXALT [Suspect]
     Active Substance: RIZATRIPTAN BENZOATE
     Route: 048
  12. ADCO SIMVASTATIN [Suspect]
     Active Substance: SIMVASTATIN
     Dosage: 10 MG, UNK
  13. FLUANXOL [Suspect]
     Active Substance: FLUPENTIXOL
  14. ALTOSEC [Suspect]
     Active Substance: OMEPRAZOLE

REACTIONS (2)
  - Adverse event [Unknown]
  - Systemic lupus erythematosus [Unknown]
